FAERS Safety Report 23444760 (Version 3)
Quarter: 2024Q2

REPORT INFORMATION
  Report Type: Report from Study
  Country: ES (occurrence: ES)
  Receive Date: 20240125
  Receipt Date: 20240530
  Transmission Date: 20240716
  Serious: Yes (Hospitalization, Other)
  Sender: FDA-Public Use
  Company Number: ES-AMNEAL PHARMACEUTICALS-2022-AMRX-04349

PATIENT
  Age: 73 Year
  Sex: Male
  Weight: 89.9 kg

DRUGS (9)
  1. ONGENTYS [Suspect]
     Active Substance: OPICAPONE
     Indication: Parkinson^s disease
     Dosage: 50 MILLIGRAM, 1 /DAY
     Route: 065
     Dates: start: 20220427
  2. PRAMIPEXOLE [Concomitant]
     Active Substance: PRAMIPEXOLE\PRAMIPEXOLE DIHYDROCHLORIDE
     Indication: Parkinson^s disease
     Dosage: 2.1 MILLIGRAM, QD
     Route: 065
     Dates: start: 20161011
  3. CARBIDOPA\LEVODOPA [Concomitant]
     Active Substance: CARBIDOPA\LEVODOPA
     Indication: Parkinson^s disease
     Dosage: 100/25 MG, 3 TIMES/DAY, (TOTAL DAILY DOSE OF LEVODOPA: 300 MG)
     Route: 065
     Dates: start: 20210204, end: 202302
  4. CARBIDOPA\LEVODOPA [Concomitant]
     Active Substance: CARBIDOPA\LEVODOPA
     Dosage: 100/25 MG, 4 TIMES/DAY (TOTAL DAILY DOSE OF LEVODOPA: 400 MG).
     Route: 065
     Dates: start: 20230215
  5. RASAGILINE [Concomitant]
     Active Substance: RASAGILINE\RASAGILINE MESYLATE
     Indication: Parkinson^s disease
     Dosage: 1 MILLIGRAM, QD
     Route: 065
     Dates: start: 20140305, end: 20230321
  6. ACETAMINOPHEN\TRAMADOL [Concomitant]
     Active Substance: ACETAMINOPHEN\TRAMADOL
     Indication: Back pain
     Dosage: 37.5 MG/32
     Route: 065
  7. ZOLPIDEM [Concomitant]
     Active Substance: ZOLPIDEM TARTRATE
     Indication: Insomnia
     Dosage: 5 MG (UNSPECIFIED FREQUENCY)
     Route: 065
     Dates: start: 20220101
  8. SAFINAMIDE [Concomitant]
     Active Substance: SAFINAMIDE
     Indication: Parkinson^s disease
     Dosage: 50 MG, ONCE DAILY
     Route: 065
     Dates: start: 20230321, end: 20230425
  9. SAFINAMIDE [Concomitant]
     Active Substance: SAFINAMIDE
     Dosage: 100 MG, ONCE DAILY
     Route: 065
     Dates: start: 20230425

REACTIONS (27)
  - Lumbar spinal stenosis [Recovered/Resolved]
  - Parkinson^s disease [Not Recovered/Not Resolved]
  - Balance disorder [Recovered/Resolved]
  - Rash pruritic [Recovered/Resolved]
  - Fungal infection [Recovered/Resolved]
  - Chest discomfort [Recovered/Resolved]
  - Nervousness [Recovered/Resolved]
  - Malaise [Recovered/Resolved]
  - Urinary tract infection [Recovered/Resolved]
  - Restless legs syndrome [Recovered/Resolved]
  - Impaired gastric emptying [Recovered/Resolved]
  - Pain in extremity [Recovered/Resolved]
  - Drug ineffective [Unknown]
  - Respiratory distress [Not Recovered/Not Resolved]
  - Abdominal distension [Not Recovered/Not Resolved]
  - Hypoaesthesia [Not Recovered/Not Resolved]
  - Paraesthesia [Not Recovered/Not Resolved]
  - Bladder dysfunction [Not Recovered/Not Resolved]
  - Vitamin B12 decreased [Not Recovered/Not Resolved]
  - Helicobacter test positive [Not Recovered/Not Resolved]
  - Chest discomfort [Recovered/Resolved]
  - Dystonia [Not Recovered/Not Resolved]
  - Blood pressure increased [Not Recovered/Not Resolved]
  - Dizziness [Recovered/Resolved]
  - Dizziness [Recovered/Resolved]
  - Confusional state [Recovered/Resolved]
  - Hallucination, visual [Recovered/Resolved]

NARRATIVE: CASE EVENT DATE: 20220427
